FAERS Safety Report 10410436 (Version 1)
Quarter: 2014Q3

REPORT INFORMATION
  Report Type: Report from Study
  Country: US (occurrence: US)
  Receive Date: 20140826
  Receipt Date: 20140826
  Transmission Date: 20150326
  Serious: Yes (Hospitalization)
  Sender: FDA-Public Use
  Company Number: US-GLAXOSMITHKLINE-A1084651B

PATIENT
  Age: 56 Year
  Sex: Male

DRUGS (9)
  1. ELTROMBOPAG [Suspect]
     Active Substance: ELTROMBOPAG
     Indication: MYELODYSPLASTIC SYNDROME
     Dosage: 100MG PER DAY
     Route: 048
     Dates: start: 20140530
  2. ALLERGY MEDICINE [Concomitant]
     Active Substance: DIPHENHYDRAMINE HYDROCHLORIDE
     Dosage: 180MG PER DAY
     Route: 048
  3. MAGNESIUM-ZINC SUPPLEMENT [Concomitant]
     Dosage: 1TAB PER DAY
     Route: 048
  4. LEVAQUIN [Concomitant]
     Active Substance: LEVOFLOXACIN
     Dosage: 500MG PER DAY
     Route: 048
  5. DECITABINE. [Suspect]
     Active Substance: DECITABINE
     Indication: MYELODYSPLASTIC SYNDROME
     Dosage: 20MGM2 CYCLIC
     Route: 042
     Dates: start: 20140530
  6. DIFLUCAN [Concomitant]
     Active Substance: FLUCONAZOLE
  7. LOSARTAN [Concomitant]
     Active Substance: LOSARTAN
     Dosage: 50MG PER DAY
     Route: 048
  8. INSULIN [Concomitant]
     Active Substance: INSULIN NOS
  9. FISH OIL [Concomitant]
     Active Substance: FISH OIL
     Dosage: 1000MG PER DAY
     Route: 048

REACTIONS (1)
  - Portal vein thrombosis [Unknown]

NARRATIVE: CASE EVENT DATE: 20140815
